FAERS Safety Report 6107512-3 (Version None)
Quarter: 2009Q1

REPORT INFORMATION
  Report Type: 
  Country: None (occurrence: None)
  Receive Date: 20090309
  Receipt Date: 20090302
  Transmission Date: 20090719
  Serious: Yes (Other)
  Sender: FDA-Public Use
  Company Number: US-JNJFOC-20090301066

PATIENT
  Sex: Female

DRUGS (3)
  1. TYLENOL (CAPLET) [Suspect]
  2. TYLENOL (CAPLET) [Suspect]
     Indication: PAIN
  3. ATIVAN [Concomitant]

REACTIONS (4)
  - PHARYNGEAL OEDEMA [None]
  - PHARYNGITIS [None]
  - SWOLLEN TONGUE [None]
  - WRONG TECHNIQUE IN DRUG USAGE PROCESS [None]
